FAERS Safety Report 4437703-9 (Version None)
Quarter: 2004Q3

REPORT INFORMATION
  Report Type: 
  Country: None (occurrence: None)
  Receive Date: 20040831
  Receipt Date: 20031210
  Transmission Date: 20050211
  Serious: No
  Sender: FDA-Public Use
  Company Number: US-GLAXOSMITHKLINE-A0444049A

PATIENT
  Age: 58 Year
  Sex: Female

DRUGS (1)
  1. ACYCLOVIR [Suspect]
     Indication: HERPES SIMPLEX
     Dosage: 200MG VARIABLE DOSE
     Route: 048

REACTIONS (2)
  - HERPES SIMPLEX [None]
  - HERPES ZOSTER [None]
